FAERS Safety Report 10047968 (Version 1)
Quarter: 2014Q1

REPORT INFORMATION
  Report Type: Spontaneous
  Country: US (occurrence: US)
  Receive Date: 20140331
  Receipt Date: 20140331
  Transmission Date: 20141002
  Serious: No
  Sender: FDA-Public Use
  Company Number: US-PFIZER INC-2014090429

PATIENT
  Age: 60 Year
  Sex: Female
  Weight: 94.33 kg

DRUGS (1)
  1. LYRICA [Suspect]
     Indication: NERVE INJURY
     Dosage: 150 MG, 3X/DAY
     Dates: start: 2013

REACTIONS (1)
  - Weight increased [Unknown]
